FAERS Safety Report 8511136-8 (Version None)
Quarter: 2012Q3

REPORT INFORMATION
  Report Type: 
  Country: None (occurrence: None)
  Receive Date: 20120716
  Receipt Date: 20120709
  Transmission Date: 20120928
  Serious: Yes (Hospitalization)
  Sender: FDA-Public Use
  Company Number: US-AMGEN-USASP2012042374

PATIENT
  Age: 82 Year
  Sex: Male

DRUGS (12)
  1. PRILOSEC [Concomitant]
     Dosage: UNK
  2. TOPROL-XL [Concomitant]
     Dosage: UNK
  3. MEVACOR [Concomitant]
     Dosage: UNK
  4. HYDROCHLOROTHIAZIDE [Concomitant]
     Dosage: UNK
  5. ASPIRIN [Concomitant]
     Dosage: LOW DOSE
  6. PLAVIX [Concomitant]
     Dosage: UNK
  7. NEURONTIN [Concomitant]
     Dosage: UNK
  8. MULTI-VITAMINS [Concomitant]
     Dosage: UNK
  9. AVAPRO [Concomitant]
     Dosage: UNK
  10. ARANESP [Suspect]
     Indication: ANAEMIA
  11. ARANESP [Suspect]
     Dosage: 100 MG, Q6WK
  12. CARDURA [Concomitant]
     Dosage: UNK

REACTIONS (2)
  - HAEMOGLOBIN DECREASED [None]
  - ANGINA PECTORIS [None]
